FAERS Safety Report 7457008-1 (Version None)
Quarter: 2011Q2

REPORT INFORMATION
  Report Type: 
  Country: None (occurrence: None)
  Receive Date: 20110504
  Receipt Date: 20110422
  Transmission Date: 20111010
  Serious: Yes (Hospitalization)
  Sender: FDA-Public Use
  Company Number: US-BAYER-200821303NA

PATIENT
  Age: 32 Year
  Sex: Female
  Weight: 66 kg

DRUGS (7)
  1. TOPAMAX [Concomitant]
  2. OTHER RESPIRATORY SYSTEM PRODUCTS [Concomitant]
  3. POTASSIUM [Concomitant]
  4. YASMIN [Suspect]
     Indication: ABDOMINAL PAIN
  5. YASMIN [Suspect]
     Indication: SKIN DISORDER
     Dosage: 1 TAB/DAY
     Dates: start: 20060101, end: 20061018
  6. YASMIN [Suspect]
     Indication: MENSTRUATION IRREGULAR
  7. FUROSEMIDE [Concomitant]
     Dosage: 20 MG (DAILY DOSE), QD,

REACTIONS (11)
  - PULMONARY EMBOLISM [None]
  - EMOTIONAL DISTRESS [None]
  - DEEP VEIN THROMBOSIS [None]
  - PAIN [None]
  - INJURY [None]
  - ANXIETY [None]
  - LOSS OF CONSCIOUSNESS [None]
  - DYSPNOEA [None]
  - INTRACARDIAC THROMBUS [None]
  - THROMBOSIS [None]
  - CARDIAC DISORDER [None]
